FAERS Safety Report 16561202 (Version 1)
Quarter: 2019Q3

REPORT INFORMATION
  Report Type: Spontaneous
  Country: DE (occurrence: DE)
  Receive Date: 20190711
  Receipt Date: 20190711
  Transmission Date: 20191004
  Serious: Yes (Other)
  Sender: FDA-Public Use
  Company Number: DE-MYLANLABS-2019M1063449

PATIENT

DRUGS (3)
  1. METHOTREXATE. [Suspect]
     Active Substance: METHOTREXATE
     Dosage: 10 MILLIGRAM, WEEKLY
     Route: 065
  2. HUMIRA [Concomitant]
     Active Substance: ADALIMUMAB
     Dosage: UNK
     Route: 065
  3. METHOTREXATE. [Suspect]
     Active Substance: METHOTREXATE
     Indication: PRODUCT USED FOR UNKNOWN INDICATION
     Dosage: 1 UNK, QW (UP TO 22.5 WEEKLY)
     Route: 065
     Dates: start: 2011, end: 2013

REACTIONS (10)
  - Arthralgia [Unknown]
  - Tenosynovitis [Unknown]
  - Oral pain [Unknown]
  - Lymphadenopathy [Unknown]
  - Pleurisy [Unknown]
  - Parotid gland enlargement [Unknown]
  - Temporomandibular joint syndrome [Unknown]
  - Arthritis [Unknown]
  - Sjogren^s syndrome [Unknown]
  - Stomatitis [Unknown]

NARRATIVE: CASE EVENT DATE: 2011
